FAERS Safety Report 7594066-8 (Version None)
Quarter: 2011Q3

REPORT INFORMATION
  Report Type: 
  Country: None (occurrence: None)
  Receive Date: 20110706
  Receipt Date: 20110627
  Transmission Date: 20111222
  Serious: Yes (Other)
  Sender: FDA-Public Use
  Company Number: US-CEPHALON-2011002829

PATIENT
  Sex: Female
  Weight: 66 kg

DRUGS (9)
  1. DICLOFENAC SODIUM [Concomitant]
  2. METHOTREXATE [Concomitant]
  3. PREDNISONE [Concomitant]
  4. ZANTAC [Concomitant]
  5. NUVIGIL [Suspect]
     Indication: DEPRESSION
     Route: 048
     Dates: start: 20100801, end: 20110201
  6. NUVIGIL [Suspect]
     Indication: SOMNOLENCE
     Route: 048
     Dates: start: 20110201
  7. ZYPREXA [Concomitant]
  8. CYMBALTA [Concomitant]
  9. REMICADE [Concomitant]

REACTIONS (2)
  - RHEUMATOID ARTHRITIS [None]
  - DRUG PRESCRIBING ERROR [None]
